FAERS Safety Report 16581672 (Version 1)
Quarter: 2019Q3

REPORT INFORMATION
  Report Type: Spontaneous
  Country: FR (occurrence: FR)
  Receive Date: 20190716
  Receipt Date: 20190716
  Transmission Date: 20191004
  Serious: Yes (Hospitalization, Other)
  Sender: FDA-Public Use
  Company Number: FR-BIOGEN-2019BI00760483

PATIENT
  Age: 25 Year
  Sex: Male
  Weight: 64 kg

DRUGS (13)
  1. LIORESAL [Concomitant]
     Active Substance: BACLOFEN
     Indication: MUSCLE TIGHTNESS
     Route: 065
  2. LYRICA [Concomitant]
     Active Substance: PREGABALIN
     Route: 065
  3. LYRICA [Concomitant]
     Active Substance: PREGABALIN
     Route: 065
  4. SEROPLEX [Concomitant]
     Active Substance: ESCITALOPRAM OXALATE
     Indication: ANXIETY
     Route: 065
  5. ALPRAZOLAM. [Concomitant]
     Active Substance: ALPRAZOLAM
     Indication: PRODUCT USED FOR UNKNOWN INDICATION
     Route: 065
  6. DAFALGAN [Concomitant]
     Active Substance: ACETAMINOPHEN
     Indication: PRODUCT USED FOR UNKNOWN INDICATION
     Route: 065
  7. TANGANIL [Concomitant]
     Active Substance: ACETYLLEUCINE
     Indication: PRODUCT USED FOR UNKNOWN INDICATION
     Route: 065
  8. THERALENE [Concomitant]
     Active Substance: TRIMEPRAZINE
     Indication: PRODUCT USED FOR UNKNOWN INDICATION
     Route: 065
  9. TYSABRI [Suspect]
     Active Substance: NATALIZUMAB
     Route: 065
     Dates: start: 20130807, end: 201610
  10. LYRICA [Concomitant]
     Active Substance: PREGABALIN
     Indication: PAIN
     Route: 065
  11. EFFEXOR [Concomitant]
     Active Substance: VENLAFAXINE HYDROCHLORIDE
     Indication: PRODUCT USED FOR UNKNOWN INDICATION
     Route: 065
  12. TYSABRI [Suspect]
     Active Substance: NATALIZUMAB
     Indication: MULTIPLE SCLEROSIS
     Route: 042
     Dates: start: 201304, end: 201610
  13. IBUPROFEN. [Concomitant]
     Active Substance: IBUPROFEN
     Indication: MIGRAINE
     Route: 065

REACTIONS (13)
  - Dyspnoea [Unknown]
  - Asthenia [Unknown]
  - Lhermitte^s sign [Unknown]
  - Head injury [Unknown]
  - Neuralgia [Unknown]
  - Visual acuity reduced [Unknown]
  - Seizure [Not Recovered/Not Resolved]
  - Motor dysfunction [Unknown]
  - Gamma-glutamyltransferase increased [Unknown]
  - Deafness [Unknown]
  - Musculoskeletal stiffness [Unknown]
  - Dysuria [Unknown]
  - Urinary retention [Unknown]

NARRATIVE: CASE EVENT DATE: 201407
